FAERS Safety Report 9793868 (Version 2)
Quarter: 2014Q1

REPORT INFORMATION
  Report Type: Spontaneous
  Country: US (occurrence: US)
  Receive Date: 20140102
  Receipt Date: 20140102
  Transmission Date: 20141002
  Serious: No
  Sender: FDA-Public Use
  Company Number: US-AMGEN-USASP2013089301

PATIENT
  Age: 46 Year
  Sex: Female

DRUGS (9)
  1. ENBREL [Suspect]
     Indication: PRODUCT USED FOR UNKNOWN INDICATION
     Dosage: 50 MG, QWK
     Route: 058
     Dates: start: 20130916
  2. FOLIC ACID [Concomitant]
     Dosage: UNK
  3. FIBER LAXATIVE [Concomitant]
     Dosage: 0.52 G, UNK
  4. LACTAID [Concomitant]
     Dosage: 3000 UNIT, UNK
  5. HYOSCYAMINE [Concomitant]
     Dosage: 0.125 MG, UNK
  6. ZIAC                               /00821801/ [Concomitant]
     Dosage: 2.5/6.25
  7. SYNTHROID [Concomitant]
     Dosage: 88 MUG, UNK
  8. ATIVAN [Concomitant]
     Dosage: 1 MG, UNK
  9. METHOTREXATE [Concomitant]
     Dosage: 2.5 MG, UNK

REACTIONS (3)
  - Feeling hot [Not Recovered/Not Resolved]
  - Erythema [Not Recovered/Not Resolved]
  - Respiratory tract congestion [Unknown]
